FAERS Safety Report 11388286 (Version 2)
Quarter: 2016Q2

REPORT INFORMATION
  Report Type: Spontaneous
  Country: US (occurrence: US)
  Receive Date: 20150817
  Receipt Date: 20160625
  Transmission Date: 20160815
  Serious: Yes (Hospitalization, Other)
  Sender: FDA-Public Use
  Company Number: PHHY2015US098621

PATIENT
  Age: 47 Year
  Sex: Female

DRUGS (3)
  1. BACLOFEN. [Suspect]
     Active Substance: BACLOFEN
     Indication: MYOCLONUS
     Dosage: 5 MG, TID
     Route: 048
  2. BACLOFEN. [Suspect]
     Active Substance: BACLOFEN
     Dosage: 5 MG, TID
     Route: 048
  3. GABAPENTIN. [Suspect]
     Active Substance: GABAPENTIN
     Indication: PRODUCT USED FOR UNKNOWN INDICATION
     Dosage: 300 MG, QD
     Route: 048

REACTIONS (9)
  - Hypertensive crisis [Unknown]
  - Neurotoxicity [Unknown]
  - Generalised tonic-clonic seizure [Unknown]
  - Myoclonus [Unknown]
  - Respiratory failure [Unknown]
  - Hyporesponsive to stimuli [Unknown]
  - Mental status changes [Recovering/Resolving]
  - Toxicity to various agents [Unknown]
  - Hypoventilation [Unknown]
